FAERS Safety Report 20326973 (Version 1)
Quarter: 2022Q1

REPORT INFORMATION
  Report Type: Spontaneous
  Country: RO (occurrence: RO)
  Receive Date: 20220112
  Receipt Date: 20220112
  Transmission Date: 20220424
  Serious: Yes (Other)
  Sender: FDA-Public Use
  Company Number: RO-ROCHE-2982496

PATIENT
  Age: 58 Year
  Sex: Female

DRUGS (6)
  1. DOXORUBICIN [Suspect]
     Active Substance: DOXORUBICIN
     Indication: Follicular lymphoma
     Route: 065
  2. OBINUTUZUMAB [Suspect]
     Active Substance: OBINUTUZUMAB
     Indication: Follicular lymphoma
     Dosage: STRENGTH 1000MG/40ML, CYCLE 1: 100MG DAY1, 900MG DAY 2, 1000MG DAY 8 AND 1000 DAY15 . CYCLE 2-6: 100
     Route: 042
  3. PREDNISONE [Suspect]
     Active Substance: PREDNISONE
     Indication: Follicular lymphoma
     Dosage: UNK
     Route: 065
  4. VINCRISTINE [Suspect]
     Active Substance: VINCRISTINE
     Indication: Follicular lymphoma
     Dosage: UNK
     Route: 065
  5. CYCLOPHOSPHAMIDE [Suspect]
     Active Substance: CYCLOPHOSPHAMIDE
     Indication: Follicular lymphoma
     Dosage: UNK
     Route: 065
  6. SULFASALAZINUM [Concomitant]
     Indication: Rheumatoid arthritis
     Dosage: UNK
     Dates: start: 2010, end: 2011

REACTIONS (5)
  - Transaminases increased [Unknown]
  - Thrombocytopenia [Unknown]
  - Neutropenia [Unknown]
  - Asthenia [Unknown]
  - Arthralgia [Unknown]
